FAERS Safety Report 8146243-5 (Version None)
Quarter: 2012Q1

REPORT INFORMATION
  Report Type: 
  Country: None (occurrence: None)
  Receive Date: 20120217
  Receipt Date: 20111215
  Transmission Date: 20120608
  Serious: No
  Sender: FDA-Public Use
  Company Number: US-ABBOTT-11P-163-0883389-00

PATIENT
  Sex: Female
  Weight: 81.72 kg

DRUGS (6)
  1. ASPIRIN [Concomitant]
     Indication: PRODUCT USED FOR UNKNOWN INDICATION
     Dosage: 30 MIN BEFORE DOSE OF SIMCOR
  2. SIMCOR [Suspect]
     Indication: BLOOD CHOLESTEROL ABNORMAL
     Dosage: 500/20 MG AT BEDTIME
     Route: 048
     Dates: start: 20111212
  3. METFORMIN HCL [Concomitant]
     Indication: PRODUCT USED FOR UNKNOWN INDICATION
  4. GLIPIZIDE [Concomitant]
     Indication: PRODUCT USED FOR UNKNOWN INDICATION
  5. HYDROCHLOROTHIAZIDE [Concomitant]
     Indication: PRODUCT USED FOR UNKNOWN INDICATION
  6. CARISOPRODOL [Concomitant]
     Indication: HEADACHE

REACTIONS (5)
  - DEPRESSED MOOD [None]
  - APATHY [None]
  - FLUSHING [None]
  - PRURITUS [None]
  - ERYTHEMA [None]
